FAERS Safety Report 13280729 (Version 1)
Quarter: 2017Q1

REPORT INFORMATION
  Report Type: Other
  Country: CA (occurrence: CA)
  Receive Date: 20170301
  Receipt Date: 20170301
  Transmission Date: 20170428
  Serious: Yes (Other)
  Sender: FDA-Public Use
  Company Number: CA-APOTEX-2017AP007154

PATIENT
  Age: 63 Year
  Sex: Male

DRUGS (12)
  1. APO-CANDESARTAN [Suspect]
     Active Substance: CANDESARTAN
     Indication: HYPOTENSION
     Dosage: 8 MG, QD
     Route: 048
  2. CITALOPRAM [Concomitant]
     Active Substance: CITALOPRAM HYDROBROMIDE
     Indication: ANXIETY
  3. PROCHLORPERAZINE. [Concomitant]
     Active Substance: PROCHLORPERAZINE
     Indication: NAUSEA
     Dosage: 10 MG, ONCE EVERY SIX HOURS
     Route: 048
  4. CEFZIL [Concomitant]
     Active Substance: CEFPROZIL
     Indication: SINUSITIS
     Dosage: 500 MG, BID
     Route: 048
  5. CEFZIL [Concomitant]
     Active Substance: CEFPROZIL
     Indication: LOWER RESPIRATORY TRACT INFECTION
  6. NYSTATIN. [Concomitant]
     Active Substance: NYSTATIN
     Indication: DEPRESSION
     Dosage: 2.5 ML, TID
     Route: 048
  7. NYSTATIN. [Concomitant]
     Active Substance: NYSTATIN
     Indication: ANXIETY
  8. PANTOPRAZOLE [Concomitant]
     Active Substance: PANTOPRAZOLE SODIUM
     Indication: GASTROINTESTINAL TRACT IRRITATION
     Dosage: 40 MG, QD
     Route: 048
  9. APO-DEXAMETHASONE [Suspect]
     Active Substance: DEXAMETHASONE
     Indication: PLASMA CELL MYELOMA
     Dosage: 20 MG, Q.WK.
     Route: 048
  10. CITALOPRAM [Concomitant]
     Active Substance: CITALOPRAM HYDROBROMIDE
     Indication: DEPRESSION
     Dosage: 40 MG, QD
     Route: 048
  11. ACETYLSALICYLIC ACID [Concomitant]
     Active Substance: ASPIRIN
     Indication: COLITIS ULCERATIVE
     Dosage: UNK, TID
     Route: 048
  12. REVLIMID [Suspect]
     Active Substance: LENALIDOMIDE
     Indication: PLASMA CELL MYELOMA
     Dosage: 25 MG, UNK, 21 EVERY 28 DAYS
     Route: 048

REACTIONS (1)
  - Deep vein thrombosis [Unknown]
